FAERS Safety Report 7437165-3 (Version None)
Quarter: 2011Q2

REPORT INFORMATION
  Report Type: 
  Country: None (occurrence: None)
  Receive Date: 20110426
  Receipt Date: 20110419
  Transmission Date: 20111010
  Serious: Yes (Hospitalization)
  Sender: FDA-Public Use
  Company Number: IT-TEVA-277305ISR

PATIENT
  Sex: Male

DRUGS (2)
  1. OXALIPLATIN [Suspect]
     Dosage: 100 MILLIGRAM;
     Route: 042
     Dates: start: 20110418, end: 20110418
  2. OXALIPLATIN [Suspect]
     Indication: GASTROINTESTINAL NEOPLASM
     Dosage: 50 MILLIGRAM;
     Route: 042
     Dates: start: 20110418, end: 20110418

REACTIONS (4)
  - BLOOD PRESSURE INCREASED [None]
  - PYREXIA [None]
  - TREMOR [None]
  - VOMITING [None]
